FAERS Safety Report 5969906-6 (Version None)
Quarter: 2008Q4

REPORT INFORMATION
  Report Type: 
  Country: None (occurrence: None)
  Receive Date: 20081126
  Receipt Date: 20081001
  Transmission Date: 20090506
  Serious: No
  Sender: FDA-Public Use
  Company Number: US-ABBOTT-08P-163-0479363-00

PATIENT
  Sex: Male
  Weight: 93.07 kg

DRUGS (2)
  1. SIMCOR [Suspect]
     Indication: BLOOD CHOLESTEROL
     Dosage: 500/20 MG
     Route: 048
     Dates: start: 20080926
  2. RESPAIRE-SR-120 [Concomitant]
     Indication: SINUS DISORDER
     Route: 048
     Dates: start: 20080901

REACTIONS (1)
  - FLUSHING [None]
